FAERS Safety Report 15012039 (Version 4)
Quarter: 2018Q3

REPORT INFORMATION
  Report Type: Spontaneous
  Country: FR (occurrence: FR)
  Receive Date: 20180614
  Receipt Date: 20180729
  Transmission Date: 20181010
  Serious: Yes (Death, Hospitalization)
  Sender: FDA-Public Use
  Company Number: PHHY2018FR020994

PATIENT
  Age: 69 Year
  Sex: Female
  Weight: 55 kg

DRUGS (10)
  1. CUBICIN [Suspect]
     Active Substance: DAPTOMYCIN
     Indication: BACTERAEMIA
     Dosage: 400 MG, QD
     Route: 042
     Dates: start: 20171102
  2. FLUCONAZOLE. [Concomitant]
     Active Substance: FLUCONAZOLE
     Indication: SEPSIS
     Dosage: 100 MG, QD
     Route: 048
     Dates: start: 20171027, end: 20171110
  3. PANTOPRAZOLE [Suspect]
     Active Substance: PANTOPRAZOLE
     Indication: PRODUCT USED FOR UNKNOWN INDICATION
     Dosage: 40 MG, QD
     Route: 048
     Dates: start: 20170930, end: 20171117
  4. CIPROFLOXACIN. [Concomitant]
     Active Substance: CIPROFLOXACIN
     Indication: SEPSIS
     Dosage: 400 MG, QD
     Route: 042
     Dates: start: 20171027, end: 20171110
  5. TAZOCILLINE [Concomitant]
     Active Substance: PIPERACILLIN SODIUM\TAZOBACTAM SODIUM
     Indication: SEPSIS
     Dosage: 12 G, QD(STRENGTH 4/500 G/MG)
     Route: 042
     Dates: start: 20171027, end: 20171110
  6. CUBICIN [Suspect]
     Active Substance: DAPTOMYCIN
     Dosage: 400 MG, QD
     Route: 042
     Dates: start: 20171115
  7. CORDARONE [Concomitant]
     Active Substance: AMIODARONE HYDROCHLORIDE
     Indication: ATRIAL FIBRILLATION
     Dosage: 150 MG, QD
     Route: 041
     Dates: start: 20170911
  8. RAMIPRIL. [Suspect]
     Active Substance: RAMIPRIL
     Indication: RENAL FAILURE
     Dosage: 10 MG, QD
     Route: 048
     Dates: end: 20171117
  9. ALDACTONE [Concomitant]
     Active Substance: SPIRONOLACTONE
     Indication: OEDEMA
     Dosage: 50 MG, QD(COMPRIME PELLICULE SECABLE)
     Route: 065
     Dates: start: 20171019
  10. FUROSEMIDE. [Concomitant]
     Active Substance: FUROSEMIDE
     Indication: PRODUCT USED FOR UNKNOWN INDICATION
     Dosage: UNK
     Route: 048
     Dates: start: 20170911

REACTIONS (1)
  - Agranulocytosis [Recovered/Resolved]

NARRATIVE: CASE EVENT DATE: 20171117
